FAERS Safety Report 6680095-5 (Version None)
Quarter: 2010Q2

REPORT INFORMATION
  Report Type: 
  Country: None (occurrence: None)
  Receive Date: 20100413
  Receipt Date: 20100330
  Transmission Date: 20101027
  Serious: Yes (Hospitalization, Disabling, Other)
  Sender: FDA-Public Use
  Company Number: PHHY2010US20573

PATIENT
  Sex: Female

DRUGS (5)
  1. TASIGNA [Suspect]
     Indication: CHRONIC MYELOID LEUKAEMIA
     Dosage: 200/400 MG, QAM/QPM
     Route: 048
     Dates: start: 20090320
  2. SYNTHROID [Concomitant]
  3. INSULIN [Concomitant]
  4. BONIVA [Concomitant]
  5. OSCAL [Concomitant]

REACTIONS (12)
  - ACUTE MYOCARDIAL INFARCTION [None]
  - BLOOD CREATININE INCREASED [None]
  - BLOOD GLUCOSE INCREASED [None]
  - CEREBROVASCULAR ACCIDENT [None]
  - CHEST DISCOMFORT [None]
  - DEPRESSED LEVEL OF CONSCIOUSNESS [None]
  - NAUSEA [None]
  - PALLOR [None]
  - POSTOPERATIVE THORACIC PROCEDURE COMPLICATION [None]
  - SPEECH DISORDER [None]
  - VASCULAR GRAFT [None]
  - VOMITING [None]
